FAERS Safety Report 5278895-1 (Version None)
Quarter: 2007Q1

REPORT INFORMATION
  Report Type: 
  Country: None (occurrence: None)
  Receive Date: 20070328
  Receipt Date: 20070323
  Transmission Date: 20070707
  Serious: No
  Sender: FDA-Public Use
  Company Number: FR-ELI_LILLY_AND_COMPANY-FR200703005212

PATIENT
  Age: 33 Year
  Sex: Female

DRUGS (4)
  1. ZYPREXA [Suspect]
     Indication: SCHIZOPHRENIA
     Dosage: 10 MG, DAILY (1/D)
     Route: 048
     Dates: start: 20000101
  2. TERCIAN [Concomitant]
     Dosage: UNK, UNKNOWN
     Route: 065
  3. DEROXAT [Concomitant]
     Dosage: UNK, UNKNOWN
     Route: 065
  4. DEPAKOTE [Concomitant]
     Dosage: UNK, UNKNOWN
     Route: 065

REACTIONS (1)
  - EOSINOPHILIA [None]
